FAERS Safety Report 4337233-9 (Version None)
Quarter: 2004Q2

REPORT INFORMATION
  Report Type: 
  Country: None (occurrence: None)
  Receive Date: 20040413
  Receipt Date: 20040331
  Transmission Date: 20050107
  Serious: Yes (Hospitalization)
  Sender: FDA-Public Use
  Company Number: 200411386FR

PATIENT
  Age: 35 Year
  Sex: Female

DRUGS (2)
  1. ARAVA [Suspect]
     Route: 048
  2. UNKNOWN DRUG [Concomitant]

REACTIONS (3)
  - ANXIETY [None]
  - DEPRESSION [None]
  - EXTRASYSTOLES [None]
